FAERS Safety Report 8282469-8 (Version None)
Quarter: 2012Q2

REPORT INFORMATION
  Report Type: 
  Country: None (occurrence: None)
  Receive Date: 20120413
  Receipt Date: 20120411
  Transmission Date: 20120825
  Serious: Yes (Other)
  Sender: FDA-Public Use
  Company Number: US-PFIZER INC-2012090853

PATIENT
  Age: 78 Year
  Sex: Female

DRUGS (6)
  1. METOPROLOL [Concomitant]
     Dosage: UNK
  2. LISINOPRIL [Concomitant]
     Dosage: 20 MG, UNK
  3. BETAPACE [Concomitant]
     Dosage: UNK
  4. TIKOSYN [Suspect]
     Indication: ATRIAL FIBRILLATION
     Dosage: 0.5 MG, 2X/DAY
     Route: 048
     Dates: start: 20081101
  5. WARFARIN SODIUM [Suspect]
     Dosage: 5 MG, 1X/DAY
     Dates: start: 20080101
  6. DILTIAZEM [Concomitant]
     Dosage: 19 MG, 2X/DAY

REACTIONS (1)
  - KNEE ARTHROPLASTY [None]
